APPROVED DRUG PRODUCT: LEUCOVORIN CALCIUM
Active Ingredient: LEUCOVORIN CALCIUM
Strength: EQ 25MG BASE
Dosage Form/Route: TABLET;ORAL
Application: A073101 | Product #001
Applicant: PHARMACHEMIE BV
Approved: Mar 28, 1997 | RLD: No | RS: No | Type: DISCN